FAERS Safety Report 10915975 (Version 2)
Quarter: 2015Q1

REPORT INFORMATION
  Report Type: Spontaneous
  Country: DE (occurrence: DE)
  Receive Date: 20150316
  Receipt Date: 20150325
  Transmission Date: 20150721
  Serious: Yes (Other)
  Sender: FDA-Public Use
  Company Number: DE-AMGEN-DEUSP2015012154

PATIENT
  Age: 49 Year
  Sex: Male
  Weight: 79 kg

DRUGS (1)
  1. ENBREL [Suspect]
     Active Substance: ETANERCEPT
     Indication: PSORIATIC ARTHROPATHY
     Dosage: 50 MG, WEEKLY
     Route: 058
     Dates: start: 201405, end: 201501

REACTIONS (8)
  - Drug hypersensitivity [Unknown]
  - Screaming [Recovered/Resolved]
  - Leukopenia [Unknown]
  - Ejection fraction decreased [Unknown]
  - Thrombocytopenia [Unknown]
  - Motor dysfunction [Recovered/Resolved]
  - Seizure [Recovered/Resolved]
  - Double stranded DNA antibody positive [Unknown]

NARRATIVE: CASE EVENT DATE: 201409
